FAERS Safety Report 7069590-7 (Version None)
Quarter: 2010Q4

REPORT INFORMATION
  Report Type: 
  Country: None (occurrence: None)
  Receive Date: 20101028
  Receipt Date: 20100216
  Transmission Date: 20110411
  Serious: No
  Sender: FDA-Public Use
  Company Number: US-WYE-H13937110

PATIENT
  Age: 23 Year
  Sex: Female

DRUGS (6)
  1. EFFEXOR [Suspect]
     Indication: PANIC DISORDER WITHOUT AGORAPHOBIA
     Dates: start: 20051201, end: 20050101
  2. EFFEXOR [Suspect]
     Dosage: TITRATE UP EVERY OTHER DAY BY AN EXTRA 6.25 MG
     Dates: start: 20050101, end: 20050101
  3. EFFEXOR [Suspect]
     Dates: start: 20050101, end: 20050101
  4. EFFEXOR [Suspect]
     Dates: start: 20050101, end: 20050101
  5. EFFEXOR [Suspect]
     Dosage: DOSE WAS RAISED EVERY OTHER DAY BY 6.25 MG
     Dates: start: 20050101, end: 20050101
  6. EFFEXOR [Suspect]
     Dates: start: 20050101, end: 20050101

REACTIONS (3)
  - DRUG EFFECT DECREASED [None]
  - DRY MOUTH [None]
  - RESTLESSNESS [None]
